FAERS Safety Report 19907643 (Version 2)
Quarter: 2021Q4

REPORT INFORMATION
  Report Type: Spontaneous
  Country: FR (occurrence: FR)
  Receive Date: 20211001
  Receipt Date: 20211008
  Transmission Date: 20220303
  Serious: Yes (Other)
  Sender: FDA-Public Use
  Company Number: FR-TERSERA THERAPEUTICS LLC-2021TRS004677

PATIENT

DRUGS (1)
  1. PRIALT [Suspect]
     Active Substance: ZICONOTIDE ACETATE
     Indication: Product used for unknown indication
     Dosage: 25 UG 1/1 DAY(S) (DAILY)
     Route: 065

REACTIONS (2)
  - Prostate cancer [Unknown]
  - Overdose [Unknown]
